FAERS Safety Report 16936667 (Version 3)
Quarter: 2021Q1

REPORT INFORMATION
  Report Type: Spontaneous
  Country: US (occurrence: US)
  Receive Date: 20191018
  Receipt Date: 20210318
  Transmission Date: 20210419
  Serious: Yes (Hospitalization, Other)
  Sender: FDA-Public Use
  Company Number: US-JAZZ-JPI-P-018051

PATIENT
  Age: 28 Year
  Sex: Female
  Weight: 72.73 kg

DRUGS (5)
  1. XYREM [Suspect]
     Active Substance: SODIUM OXYBATE
     Indication: NARCOLEPSY
     Dosage: 4.5 G, BID
     Route: 048
     Dates: start: 20070921
  2. LORAZEPAM. [Suspect]
     Active Substance: LORAZEPAM
     Indication: PRODUCT USED FOR UNKNOWN INDICATION
  3. MODAFINIL. [Suspect]
     Active Substance: MODAFINIL
     Indication: PRODUCT USED FOR UNKNOWN INDICATION
     Dates: start: 200704, end: 2008
  4. XYREM [Suspect]
     Active Substance: SODIUM OXYBATE
     Indication: CATAPLEXY
     Dosage: 3.75 G, BID
     Route: 048
  5. PREDNISONE ACETATE [Suspect]
     Active Substance: PREDNISONE ACETATE
     Indication: PRODUCT USED FOR UNKNOWN INDICATION

REACTIONS (8)
  - Mania [Unknown]
  - Suicidal ideation [Unknown]
  - Psychomotor hyperactivity [Unknown]
  - Anxiety [Recovering/Resolving]
  - Gingival disorder [Unknown]
  - Lymphadenopathy [Not Recovered/Not Resolved]
  - Paranoia [Unknown]
  - Adjustment disorder with depressed mood [Unknown]

NARRATIVE: CASE EVENT DATE: 200804
